APPROVED DRUG PRODUCT: BETIMOL
Active Ingredient: TIMOLOL
Strength: 0.25%
Dosage Form/Route: SOLUTION/DROPS;OPHTHALMIC
Application: N020439 | Product #001
Applicant: THEA PHARMA INC
Approved: Mar 31, 1995 | RLD: Yes | RS: No | Type: DISCN